FAERS Safety Report 6895833-6 (Version None)
Quarter: 2010Q3

REPORT INFORMATION
  Report Type: 
  Country: None (occurrence: None)
  Receive Date: 20100802
  Receipt Date: 20100721
  Transmission Date: 20110219
  Serious: Yes (Hospitalization, Other)
  Sender: FDA-Public Use
  Company Number: US-PFIZER INC-2008014080

PATIENT
  Sex: Female

DRUGS (9)
  1. LYRICA [Suspect]
     Indication: SPINAL CORD INJURY
     Dosage: 150 MG, 2X/DAY
  2. LYRICA [Suspect]
     Indication: NEURALGIA
  3. LYRICA [Suspect]
     Indication: NEUROPATHY PERIPHERAL
  4. GABAPENTIN [Suspect]
     Dosage: 1800 MG, 3X/DAY
  5. TRAZODONE [Suspect]
     Indication: SLEEP DISORDER
     Dosage: UNK
  6. LEVOTHYROXINE SODIUM [Concomitant]
  7. METOPROLOL [Concomitant]
  8. ZOLOFT [Concomitant]
  9. FOSAMAX [Concomitant]

REACTIONS (14)
  - ANEURYSM [None]
  - ARRHYTHMIA [None]
  - DEHYDRATION [None]
  - DEPENDENCE [None]
  - DEPRESSION [None]
  - DRUG DOSE OMISSION [None]
  - GAIT DISTURBANCE [None]
  - HEART RATE DECREASED [None]
  - HYPERHIDROSIS [None]
  - LABILE BLOOD PRESSURE [None]
  - MALAISE [None]
  - MUSCLE TWITCHING [None]
  - SUICIDAL IDEATION [None]
  - WITHDRAWAL SYNDROME [None]
